FAERS Safety Report 10636324 (Version 1)
Quarter: 2014Q4

REPORT INFORMATION
  Report Type: Report from Study
  Country: BR (occurrence: BR)
  Receive Date: 20141206
  Receipt Date: 20141206
  Transmission Date: 20150529
  Serious: Yes (Other)
  Sender: FDA-Public Use
  Company Number: BR-ABBVIE-14K-020-1315367-00

PATIENT
  Sex: Female
  Weight: 53 kg

DRUGS (5)
  1. METICORTEN [Concomitant]
     Active Substance: PREDNISONE
     Indication: PAIN MANAGEMENT
     Dosage: IN THE MORNING
     Route: 048
     Dates: start: 1999
  2. CYMBALTA [Concomitant]
     Active Substance: DULOXETINE HYDROCHLORIDE
     Indication: PAIN MANAGEMENT
     Route: 048
     Dates: start: 20141126
  3. TANDRILAX [Concomitant]
     Indication: PAIN MANAGEMENT
     Dosage: 1 OR 2 TABLETS DAILY
     Route: 048
     Dates: end: 201411
  4. HUMIRA [Suspect]
     Active Substance: ADALIMUMAB
     Indication: RHEUMATOID ARTHRITIS
     Route: 058
     Dates: start: 2010, end: 201204
  5. HUMIRA [Suspect]
     Active Substance: ADALIMUMAB
     Route: 058
     Dates: start: 20141127

REACTIONS (1)
  - Gait disturbance [Recovered/Resolved]
